FAERS Safety Report 7075073-0 (Version None)
Quarter: 2010Q4

REPORT INFORMATION
  Report Type: 
  Country: None (occurrence: None)
  Receive Date: 20101029
  Receipt Date: 20100407
  Transmission Date: 20110411
  Serious: No
  Sender: FDA-Public Use
  Company Number: US-WYE-H14578110

PATIENT
  Age: 26 Year
  Sex: Male
  Weight: 86.26 kg

DRUGS (1)
  1. ALAVERT D-12 [Suspect]
     Indication: HYPERSENSITIVITY
     Dosage: 1 TABLET 1 TIME
     Route: 048
     Dates: start: 20100404, end: 20100404

REACTIONS (1)
  - DRY MOUTH [None]
